FAERS Safety Report 25056336 (Version 2)
Quarter: 2025Q3

REPORT INFORMATION
  Report Type: Spontaneous
  Country: US (occurrence: US)
  Receive Date: 20250310
  Receipt Date: 20250905
  Transmission Date: 20251021
  Serious: No
  Sender: SANOFI AVENTIS
  Company Number: US-SA-2025SA069000

PATIENT
  Age: 30 Year
  Sex: Female
  Weight: 59.09 kg

DRUGS (3)
  1. DUPIXENT [Suspect]
     Active Substance: DUPILUMAB
     Indication: Nasal polyps
     Dosage: 300 MG, QOW
     Dates: start: 202407
  2. FISH OIL [Concomitant]
     Active Substance: FISH OIL
  3. MAGNESIUM [Concomitant]
     Active Substance: MAGNESIUM

REACTIONS (6)
  - Injection site pain [Unknown]
  - Product preparation error [Unknown]
  - Rhinorrhoea [Unknown]
  - Parosmia [Unknown]
  - Sinusitis [Unknown]
  - Maternal exposure during pregnancy [Unknown]
